FAERS Safety Report 6826229-0 (Version None)
Quarter: 2010Q3

REPORT INFORMATION
  Report Type: 
  Country: None (occurrence: None)
  Receive Date: 20100709
  Receipt Date: 20100625
  Transmission Date: 20110219
  Serious: Yes (Other)
  Sender: FDA-Public Use
  Company Number: PHHY2010US41605

PATIENT
  Sex: Female

DRUGS (2)
  1. ENABLEX [Suspect]
     Route: 048
  2. DETROL [Suspect]
     Route: 048

REACTIONS (3)
  - BLADDER DISORDER [None]
  - GAIT DISTURBANCE [None]
  - MICTURITION URGENCY [None]
